FAERS Safety Report 5907403-4 (Version None)
Quarter: 2008Q3

REPORT INFORMATION
  Report Type: 
  Country: None (occurrence: None)
  Receive Date: 20080929
  Receipt Date: 20080917
  Transmission Date: 20090109
  Serious: Yes (Hospitalization)
  Sender: FDA-Public Use
  Company Number: 2008AL010176

PATIENT
  Age: 14 Year
  Sex: Female

DRUGS (8)
  1. IBUPROFEN TABLETS [Suspect]
     Indication: ARTHRALGIA
     Dosage: PRN
     Dates: start: 20080501, end: 20080801
  2. DICLOFENAC SODIUM EXTENDED-RELEASE TABLETS, 100 MG (PUREPAC) (DICLOFEN [Suspect]
     Indication: PROCEDURAL PAIN
     Dosage: RTL
     Dates: start: 20080814
  3. NAPROXEN DELAYED-RELEASE TABLETS, 500 MG (PUREPAC) (NAPROXEN DELAYED-R [Suspect]
     Indication: PROCEDURAL PAIN
     Dosage: 250 MG; PO
     Route: 048
     Dates: start: 20080817, end: 20080820
  4. SPIROCORT [Concomitant]
  5. OXIS [Concomitant]
  6. ACETAMINOPHEN [Concomitant]
  7. SOLU-MEDROL [Concomitant]
  8. PREDNISOLONE ^DAK^ [Concomitant]

REACTIONS (10)
  - APPENDICITIS [None]
  - ASTHMA [None]
  - BLOOD CREATININE INCREASED [None]
  - CONDITION AGGRAVATED [None]
  - CYSTITIS HAEMORRHAGIC [None]
  - HAEMOGLOBIN DECREASED [None]
  - LIMB DISCOMFORT [None]
  - POST PROCEDURAL CONSTIPATION [None]
  - PROCTITIS HAEMORRHAGIC [None]
  - VAGINAL HAEMORRHAGE [None]
